FAERS Safety Report 9547101 (Version 2)
Quarter: 2013Q4

REPORT INFORMATION
  Report Type: Spontaneous
  Country: DE (occurrence: DE)
  Receive Date: 20130924
  Receipt Date: 20131129
  Transmission Date: 20140711
  Serious: Yes (Other)
  Sender: FDA-Public Use
  Company Number: PHHY2013DE104412

PATIENT
  Sex: Male

DRUGS (2)
  1. LEPONEX [Suspect]
     Dosage: 300 MG, QD
  2. GASTROZEPIN [Concomitant]
     Dosage: UNK UKN, UNK

REACTIONS (1)
  - Urinary tract infection [Unknown]
